FAERS Safety Report 6209764-8 (Version None)
Quarter: 2009Q2

REPORT INFORMATION
  Report Type: 
  Country: None (occurrence: None)
  Receive Date: 20090601
  Receipt Date: 20090429
  Transmission Date: 20091009
  Serious: No
  Sender: FDA-Public Use
  Company Number: US-BAYER-200919508NA

PATIENT
  Age: 44 Year
  Sex: Female

DRUGS (1)
  1. MIRENA [Suspect]
     Indication: HORMONE LEVEL ABNORMAL
     Route: 015
     Dates: start: 20090302

REACTIONS (6)
  - ABDOMINAL PAIN LOWER [None]
  - OVARIAN CYST [None]
  - POST PROCEDURAL HAEMORRHAGE [None]
  - PRURITUS GENITAL [None]
  - VAGINAL DISCHARGE [None]
  - VULVOVAGINAL MYCOTIC INFECTION [None]
